FAERS Safety Report 9700211 (Version 3)
Quarter: 2014Q1

REPORT INFORMATION
  Report Type: Spontaneous
  Country: US (occurrence: US)
  Receive Date: 20131121
  Receipt Date: 20140114
  Transmission Date: 20141002
  Serious: Yes (Hospitalization, Other)
  Sender: FDA-Public Use
  Company Number: US-ROCHE-1307513

PATIENT
  Age: 43 Year
  Sex: Female
  Weight: 60.9 kg

DRUGS (8)
  1. ALBUTEROL [Concomitant]
     Indication: ASTHMA
     Route: 065
  2. CETRIZINE [Concomitant]
     Indication: ASTHMA
     Route: 048
     Dates: start: 201307
  3. XOLAIR [Suspect]
     Indication: ASTHMA
     Route: 058
     Dates: start: 20130807, end: 20130911
  4. SINGULAIR [Concomitant]
     Indication: ASTHMA
     Route: 048
     Dates: start: 20130307
  5. DUONEB [Concomitant]
     Route: 055
     Dates: start: 201302
  6. OMEPRAZOL [Concomitant]
     Indication: GASTROOESOPHAGEAL REFLUX DISEASE
     Route: 048
     Dates: start: 20130307
  7. XANAX [Concomitant]
     Indication: ANXIETY
     Route: 048
     Dates: start: 20130307
  8. SYMBICORT [Concomitant]
     Indication: ASTHMA
     Route: 055

REACTIONS (4)
  - Anaphylactic reaction [Recovered/Resolved]
  - Asthma [Unknown]
  - Rash [Unknown]
  - Bronchospasm [Recovered/Resolved]
